FAERS Safety Report 7585412-X (Version None)
Quarter: 2011Q2

REPORT INFORMATION
  Report Type: 
  Country: None (occurrence: None)
  Receive Date: 20110628
  Receipt Date: 20110628
  Transmission Date: 20111010
  Serious: Yes (Other)
  Sender: FDA-Public Use
  Company Number: None

PATIENT
  Sex: Female

DRUGS (1)
  1. HUMIRA [Suspect]
     Dosage: 40 MG  EVERY OTHER WEEK SQ
     Route: 058
     Dates: start: 20110204, end: 20110615

REACTIONS (1)
  - LUPUS-LIKE SYNDROME [None]
